FAERS Safety Report 7421682-6 (Version None)
Quarter: 2011Q2

REPORT INFORMATION
  Report Type: 
  Country: None (occurrence: None)
  Receive Date: 20110418
  Receipt Date: 20100116
  Transmission Date: 20111010
  Serious: Yes (Death, Hospitalization, Other)
  Sender: FDA-Public Use
  Company Number: US-BAYER-201011189NA

PATIENT
  Age: 56 Year
  Sex: Male
  Weight: 66 kg

DRUGS (37)
  1. FELODIPINE [Concomitant]
     Indication: HYPERTENSION
     Dosage: 10 MG, UNK
     Route: 048
  2. AMIODARONE [Concomitant]
     Dosage: 15 MCG/KG/MIN, UNK
     Route: 042
     Dates: start: 20050916, end: 20050916
  3. RANITIDINE [Concomitant]
     Dosage: 300 MG, UNK
     Route: 048
  4. PERCOCET [Concomitant]
     Dosage: 5MG/325MG, UNK
     Route: 048
  5. NITROGLYCERIN [Concomitant]
     Dosage: 0.4 MG, PRN
     Route: 060
  6. PROTAMINE SULFATE [Concomitant]
     Dosage: 40 MG, UNK
     Route: 042
     Dates: start: 20050916, end: 20050916
  7. TRASYLOL [Suspect]
     Indication: CORONARY ARTERY BYPASS
     Dosage: 1 ML, ONCE INITIAL
     Route: 042
     Dates: start: 20051216, end: 20051216
  8. CYCLOBENZAPRINE [Concomitant]
     Indication: MUSCLE SPASMS
     Dosage: 10 MG, UNK
     Route: 048
  9. LORAZEPAM [Concomitant]
     Dosage: 1 MG, UNK
     Route: 048
  10. WARFARIN [Concomitant]
     Route: 048
  11. AMIODARONE [Concomitant]
     Dosage: 150 MG, ONCE
     Route: 042
     Dates: start: 20050916, end: 20050916
  12. DOPAMINE HCL [Concomitant]
     Dosage: 2.5-6 MCG/KG/MIN
     Route: 042
     Dates: start: 20050916
  13. SIMETHICONE [Concomitant]
     Dosage: 30 ML, UNK
     Route: 048
  14. PHENYLEPHRINE HCL [Concomitant]
     Dosage: 1 MG/KG/HR
     Route: 042
     Dates: start: 20050916
  15. HEPARIN [Concomitant]
     Dosage: 23000 U, UNK
     Route: 042
     Dates: start: 20050916, end: 20050916
  16. ACETAMINOPHEN [Concomitant]
     Dosage: 650 MG, UNK
     Route: 048
  17. FLURAZEPAM [Concomitant]
     Dosage: 30 MG, UNK
     Route: 048
  18. AMITRIPTYLINE [Concomitant]
     Dosage: 25 MG, UNK
     Route: 048
  19. ENALAPRIL MALEATE [Concomitant]
     Dosage: 1.5 MG, BID
     Route: 048
  20. MILRINONE [Concomitant]
     Dosage: 7 MG, UNK
     Route: 042
     Dates: start: 20050916
  21. HEPARIN [Concomitant]
     Dosage: 7000 U, UNK
     Route: 042
     Dates: start: 20050916, end: 20050916
  22. RED BLOOD CELLS [Concomitant]
     Dosage: 1 U, UNK
     Dates: start: 20051216, end: 20051216
  23. METOPROLOL [Concomitant]
     Dosage: 25 MG, BID
     Route: 048
  24. FUROSEMIDE [Concomitant]
     Dosage: UNK
     Route: 048
  25. ISOSORBIDE DINITRATE [Concomitant]
     Dosage: 10 MG, BID
     Route: 048
  26. VANCOMYCIN [Concomitant]
     Dosage: 1 G, UNK
     Route: 042
     Dates: start: 20050916, end: 20050916
  27. PANCURONIUM BROMIDE [Concomitant]
     Dosage: 2.5-5 MG, UNK
     Route: 042
     Dates: start: 20050916, end: 20050916
  28. TRASYLOL [Suspect]
     Dosage: 25 ML/HR, INFUSION
     Route: 042
     Dates: start: 20051216, end: 20051216
  29. REGULAR INSULIN [Concomitant]
     Dosage: SLIDING SCALE, QID
     Route: 058
  30. CEFTAZIDIME [Concomitant]
     Dosage: 1 G, UNK
     Route: 042
  31. CEFTAZIDIME [Concomitant]
     Dosage: 1 G, UNK
     Route: 042
     Dates: start: 20050916, end: 20050916
  32. TRASYLOL [Suspect]
     Dosage: 100 ML, ONCE LOADING
     Route: 042
     Dates: start: 20051216, end: 20051216
  33. VANCOMYCIN [Concomitant]
     Dosage: 1 G, UNK
     Route: 042
  34. SIMVASTATIN [Concomitant]
     Dosage: 80 MG, UNK
     Route: 048
  35. NITROGLYCERIN [Concomitant]
     Dosage: 0.3 MG, UNK
     Route: 042
     Dates: start: 20050916, end: 20050916
  36. PROPOFOL [Concomitant]
     Dosage: 100 MCG/KG/MIN
     Route: 042
     Dates: start: 20050916
  37. HEPARIN [Concomitant]
     Dosage: 5000 U, UNK
     Route: 042
     Dates: start: 20050916, end: 20050916

REACTIONS (14)
  - DEATH [None]
  - ANXIETY [None]
  - INJURY [None]
  - FEAR [None]
  - PAIN [None]
  - RENAL IMPAIRMENT [None]
  - CEREBROVASCULAR ACCIDENT [None]
  - RENAL FAILURE [None]
  - RENAL INJURY [None]
  - CARDIAC DISORDER [None]
  - UNEVALUABLE EVENT [None]
  - DEPRESSION [None]
  - ORGAN FAILURE [None]
  - ANHEDONIA [None]
